FAERS Safety Report 9679144 (Version 2)
Quarter: 2013Q4

REPORT INFORMATION
  Report Type: Spontaneous
  Country: JP (occurrence: JP)
  Receive Date: 20131108
  Receipt Date: 20131210
  Transmission Date: 20140711
  Serious: Yes (Other)
  Sender: FDA-Public Use
  Company Number: PHHY2013JP125215

PATIENT
  Sex: Female

DRUGS (4)
  1. CEFEPIME HYDROCHLORIDE SANDOZ [Suspect]
     Indication: PNEUMONIA
     Dosage: 2 G, UNK
     Route: 042
     Dates: start: 201310
  2. PLAVIX [Concomitant]
     Route: 048
  3. WARFARIN [Concomitant]
     Route: 048
  4. BAYASPIRIN [Concomitant]
     Route: 048

REACTIONS (2)
  - Urinary bladder haemorrhage [Unknown]
  - Haematuria [Recovering/Resolving]
